FAERS Safety Report 6087051-9 (Version None)
Quarter: 2009Q1

REPORT INFORMATION
  Report Type: 
  Country: None (occurrence: None)
  Receive Date: 20090223
  Receipt Date: 20090213
  Transmission Date: 20090719
  Serious: Yes (Other)
  Sender: FDA-Public Use
  Company Number: PHHY2009FR06014

PATIENT

DRUGS (1)
  1. ACLASTA [Suspect]
     Dosage: 5 MG, UNK
     Route: 042

REACTIONS (4)
  - CYTOLYTIC HEPATITIS [None]
  - PYREXIA [None]
  - RED BLOOD CELL SEDIMENTATION RATE ABNORMAL [None]
  - TRANSAMINASES INCREASED [None]
